FAERS Safety Report 5945590-2 (Version None)
Quarter: 2008Q4

REPORT INFORMATION
  Report Type: 
  Country: None (occurrence: None)
  Receive Date: 20081105
  Receipt Date: 20081030
  Transmission Date: 20090506
  Serious: Yes (Death)
  Sender: FDA-Public Use
  Company Number: APP200801047

PATIENT
  Age: 48 Year
  Sex: Female

DRUGS (7)
  1. METHYLPREDNISOLONE [Suspect]
     Indication: PROPHYLAXIS AGAINST TRANSPLANT REJECTION
     Dosage: 1000 MG, 1 IN 1 D,
     Dates: start: 19930101
  2. ANTILYMPHOCYTE GLOBULIN (ANTILYMPHOCYTE IMMUNOGLOBULIN (HORSE)) [Suspect]
     Indication: PROPHYLAXIS AGAINST TRANSPLANT REJECTION
  3. ORTHOCLONE OKT3 [Suspect]
     Indication: PROPHYLAXIS AGAINST TRANSPLANT REJECTION
  4. AMIKACIN [Concomitant]
  5. CEFTAZIDIME [Concomitant]
  6. VANCOMYCIN [Concomitant]
  7. GANCICLOVIR [Concomitant]

REACTIONS (9)
  - BRONCHOPNEUMONIA [None]
  - BRONCHOPULMONARY ASPERGILLOSIS [None]
  - CYTOMEGALOVIRUS INFECTION [None]
  - DRUG RESISTANCE [None]
  - NECROSIS [None]
  - PANCYTOPENIA [None]
  - PNEUMONIA [None]
  - RENAL FAILURE [None]
  - RESPIRATORY FAILURE [None]
